FAERS Safety Report 7339325-9 (Version None)
Quarter: 2011Q1

REPORT INFORMATION
  Report Type: 
  Country: None (occurrence: None)
  Receive Date: 20110308
  Receipt Date: 20110302
  Transmission Date: 20110831
  Serious: Yes (Life-Threatening, Hospitalization, Other)
  Sender: FDA-Public Use
  Company Number: JP-PFIZER INC-2011037830

PATIENT
  Age: 49 Year
  Sex: Male

DRUGS (11)
  1. ROHIPNOL [Concomitant]
     Indication: INSOMNIA
     Dosage: 2 MG/DAY
     Dates: start: 20110118
  2. ZOLOFT [Suspect]
     Indication: DEPRESSION
     Dosage: 25 MG, 4X/DAY
     Route: 048
     Dates: start: 20110210
  3. SEROQUEL [Concomitant]
     Dosage: 25 MG TABLET X 20 TABLETSAT ONE TIME
     Dates: start: 20110211, end: 20110211
  4. SEROQUEL [Concomitant]
     Dosage: 100 MG DAILY
     Dates: start: 20110210
  5. DOGMATYL [Concomitant]
     Dosage: 50 MG, 3X/DAY
     Dates: start: 20110125
  6. MEILAX [Concomitant]
     Dosage: 1 MG/DAY
     Dates: start: 20110210
  7. CHAMPIX [Suspect]
     Dosage: UNK
     Dates: start: 20110115, end: 20110117
  8. ZOLOFT [Suspect]
     Dosage: 25 MG TABLET X 20 TABLETS AT ONE TIME
     Dates: start: 20110211, end: 20110211
  9. SEROQUEL [Concomitant]
     Indication: INSOMNIA
     Dosage: 25 MG/DAY
     Dates: start: 20110118
  10. GOODMIN [Concomitant]
     Indication: INSOMNIA
     Dosage: 0.25 MG/DAY
     Dates: start: 20110118
  11. CHAMPIX [Suspect]
     Indication: SMOKING CESSATION THERAPY
     Dosage: UNK
     Route: 048
     Dates: start: 20101006, end: 20100101

REACTIONS (12)
  - APATHY [None]
  - INTENTIONAL OVERDOSE [None]
  - SUICIDE ATTEMPT [None]
  - INSOMNIA [None]
  - FEELING ABNORMAL [None]
  - DISORIENTATION [None]
  - DISTURBANCE IN ATTENTION [None]
  - DEPRESSION [None]
  - JUDGEMENT IMPAIRED [None]
  - DEPRESSED LEVEL OF CONSCIOUSNESS [None]
  - ANXIETY [None]
  - THINKING ABNORMAL [None]
